FAERS Safety Report 18223458 (Version 4)
Quarter: 2020Q4

REPORT INFORMATION
  Report Type: Report from Study
  Country: US (occurrence: US)
  Receive Date: 20200902
  Receipt Date: 20201215
  Transmission Date: 20210113
  Serious: Yes (Hospitalization, Other)
  Sender: FDA-Public Use
  Company Number: US-ALLERGAN-2023241US

PATIENT
  Age: 33 Year
  Sex: Male
  Weight: 82.2 kg

DRUGS (9)
  1. CARIPRAZINE HCL 4.5MG CAP (TBD) [Suspect]
     Active Substance: CARIPRAZINE HYDROCHLORIDE
     Dosage: 3 MG, QD
     Route: 048
     Dates: start: 20200423, end: 20200429
  2. ADVAIR HFA [Concomitant]
     Active Substance: FLUTICASONE PROPIONATE\SALMETEROL XINAFOATE
     Indication: ASTHMA
     Dosage: 1 DF (500/50 MCG), BID
     Route: 055
     Dates: start: 2017
  3. CARIPRAZINE HCL 4.5MG CAP (TBD) [Suspect]
     Active Substance: CARIPRAZINE HYDROCHLORIDE
     Dosage: 1.5 MG, QD
     Route: 048
     Dates: start: 20200416, end: 20200422
  4. CARIPRAZINE HCL 4.5MG CAP (TBD) [Suspect]
     Active Substance: CARIPRAZINE HYDROCHLORIDE
     Indication: SCHIZOPHRENIA
     Dosage: 4.5 MG, QD
     Route: 048
     Dates: start: 20200430, end: 20200826
  5. ALBUTEROL. [Concomitant]
     Active Substance: ALBUTEROL
     Indication: ASTHMA
     Dosage: 8.5 G, PRN
     Route: 055
     Dates: start: 2015
  6. LISINOPRIL. [Concomitant]
     Active Substance: LISINOPRIL
     Indication: HYPERTENSION
     Dosage: 20 MG, QD
     Route: 048
     Dates: start: 20200409
  7. IBUPROFEN. [Concomitant]
     Active Substance: IBUPROFEN
     Indication: HEADACHE
     Dosage: 400 MG, PRN
     Route: 048
     Dates: start: 20200409
  8. PANTOPRAZOLE [Concomitant]
     Active Substance: PANTOPRAZOLE
     Indication: GASTROOESOPHAGEAL REFLUX DISEASE
     Dosage: 40 MG, BID
     Route: 048
     Dates: start: 2017
  9. CLOBETASOL PROPIONATE. [Concomitant]
     Active Substance: CLOBETASOL PROPIONATE
     Indication: RASH
     Dosage: 1 DF, QD, STARTED IN 2020
     Route: 061

REACTIONS (4)
  - Retinal detachment [Not Recovered/Not Resolved]
  - Cataract subcapsular [Not Recovered/Not Resolved]
  - Hand fracture [Recovered/Resolved with Sequelae]
  - Road traffic accident [Recovered/Resolved]

NARRATIVE: CASE EVENT DATE: 20200603
